FAERS Safety Report 23484449 (Version 1)
Quarter: 2024Q1

REPORT INFORMATION
  Report Type: Spontaneous
  Country: US (occurrence: US)
  Receive Date: 20240206
  Receipt Date: 20240206
  Transmission Date: 20240409
  Serious: Yes (Hospitalization)
  Sender: FDA-Public Use
  Company Number: US-NOVOPROD-1170481

PATIENT

DRUGS (1)
  1. OZEMPIC [Suspect]
     Active Substance: SEMAGLUTIDE
     Indication: Product used for unknown indication
     Dosage: UNK
     Route: 058
     Dates: start: 202107, end: 202201

REACTIONS (4)
  - Mallory-Weiss syndrome [Unknown]
  - Procedural complication [Unknown]
  - Small intestinal obstruction [Unknown]
  - Ileus [Unknown]

NARRATIVE: CASE EVENT DATE: 20220126
